FAERS Safety Report 25382513 (Version 2)
Quarter: 2025Q2

REPORT INFORMATION
  Report Type: Spontaneous
  Country: US (occurrence: US)
  Receive Date: 20250601
  Receipt Date: 20250601
  Transmission Date: 20250717
  Serious: Yes (Other)
  Sender: GILEAD
  Company Number: US-GILEAD-2025-0715103

PATIENT
  Sex: Male

DRUGS (4)
  1. LENACAPAVIR [Suspect]
     Active Substance: LENACAPAVIR
     Indication: HIV infection
     Route: 065
     Dates: start: 202308, end: 202308
  2. LENACAPAVIR [Suspect]
     Active Substance: LENACAPAVIR
     Route: 065
     Dates: start: 202402, end: 202402
  3. COBICISTAT\DARUNAVIR ETHANOLATE [Suspect]
     Active Substance: COBICISTAT\DARUNAVIR ETHANOLATE
     Indication: HIV infection
     Route: 065
     Dates: start: 202308
  4. DORAVIRINE [Suspect]
     Active Substance: DORAVIRINE
     Indication: HIV infection
     Route: 065
     Dates: start: 202308

REACTIONS (2)
  - HIV viraemia [Unknown]
  - Viral load increased [Recovering/Resolving]

NARRATIVE: CASE EVENT DATE: 20240201
